FAERS Safety Report 17956800 (Version 2)
Quarter: 2020Q3

REPORT INFORMATION
  Report Type: Spontaneous
  Country: US (occurrence: US)
  Receive Date: 20200629
  Receipt Date: 20200702
  Transmission Date: 20201103
  Serious: Yes (Other)
  Sender: FDA-Public Use
  Company Number: US-PFIZER INC-2020248691

PATIENT
  Sex: Male
  Weight: 122.47 kg

DRUGS (3)
  1. NAVANE [Suspect]
     Active Substance: THIOTHIXENE
     Dosage: 50 MG, DAILY
     Route: 048
  2. NAVANE [Suspect]
     Active Substance: THIOTHIXENE
     Indication: DIABETES MELLITUS
     Dosage: 30 MG, 1X/DAY
     Route: 048
  3. NAVANE [Suspect]
     Active Substance: THIOTHIXENE
     Dosage: UNK
     Route: 048
     Dates: end: 2000

REACTIONS (5)
  - Metastases to central nervous system [Unknown]
  - Hepatic cancer [Unknown]
  - Pancreatic carcinoma [Unknown]
  - Off label use [Unknown]
  - Product use in unapproved indication [Unknown]
